FAERS Safety Report 8926772 (Version 2)
Quarter: 2012Q4

REPORT INFORMATION
  Report Type: 
  Country: US (occurrence: US)
  Receive Date: 20121127
  Receipt Date: 20121206
  Transmission Date: 20130627
  Serious: Yes (Hospitalization)
  Sender: FDA-Public Use
  Company Number: US-PFIZER INC-2012292943

PATIENT
  Age: 76 Year
  Sex: Female
  Weight: 66.67 kg

DRUGS (3)
  1. CELEBREX [Suspect]
     Indication: PAIN
     Dosage: UNK
     Dates: end: 2012
  2. CELEBREX [Suspect]
     Indication: KNEE ARTHRITIS
  3. XARELTO [Concomitant]
     Indication: ANTICOAGULANT THERAPY
     Dosage: 15 mg, daily

REACTIONS (3)
  - Arthropathy [Unknown]
  - Feeling abnormal [Unknown]
  - Oedema peripheral [Recovered/Resolved]
